FAERS Safety Report 8761057 (Version 6)
Quarter: 2014Q1

REPORT INFORMATION
  Report Type: Report from Study
  Country: JP (occurrence: JP)
  Receive Date: 20120830
  Receipt Date: 20140307
  Transmission Date: 20141002
  Serious: Yes (Hospitalization, Other)
  Sender: FDA-Public Use
  Company Number: JP-VERTEX PHARMACEUTICAL INC.-AE-2012-007616

PATIENT
  Age: 70 Year
  Sex: Male

DRUGS (15)
  1. VX-950 (TELAPREVIR) [Suspect]
     Indication: CHRONIC HEPATITIS C
     Dosage: 1500 MG, 750 MG QD
     Route: 048
     Dates: start: 20120221, end: 20120513
  2. REBETOL [Suspect]
     Indication: CHRONIC HEPATITIS C
     Dosage: 800 MG, QD
     Route: 048
     Dates: start: 20120221, end: 20120327
  3. REBETOL [Suspect]
     Dosage: 400 MG, QD
     Route: 048
     Dates: start: 20120328, end: 20120423
  4. REBETOL [Suspect]
     Dosage: 200 MG, QD
     Route: 048
     Dates: start: 20120424, end: 20120513
  5. PEGINTRON [Suspect]
     Indication: CHRONIC HEPATITIS C
     Dosage: 1.3 ?G/KG, QW
     Route: 058
     Dates: start: 20120221, end: 20120508
  6. ADRENAL HORMONE PREPARATIONS [Suspect]
  7. URSO [Concomitant]
     Dosage: 600 MG, QD
     Route: 048
     Dates: end: 20120514
  8. MEVARICH [Concomitant]
     Dosage: 10 MG, QD
     Route: 048
     Dates: end: 20120513
  9. RINDERON-V [Concomitant]
     Dosage: UNK, PRN
     Route: 061
  10. RINDERON-V [Concomitant]
     Dosage: 5 G, QD
     Route: 061
     Dates: end: 20120515
  11. LOXOPROFEN [Concomitant]
     Dosage: 60 MG, PRN
     Route: 048
     Dates: start: 20120220, end: 20120318
  12. MUCOSTA [Concomitant]
     Dosage: 100 MG, PRN
     Route: 048
     Dates: start: 20120220, end: 20120318
  13. MUCOSTA [Concomitant]
     Dosage: 300 MG, QD
     Route: 048
     Dates: start: 20120523, end: 20120808
  14. PRIMPERAN [Concomitant]
     Dosage: 5 MG, PRN
     Route: 048
     Dates: start: 20120514, end: 20120514
  15. TAKEPRON [Concomitant]
     Dosage: 1 DF, QD
     Route: 048
     Dates: start: 20120525

REACTIONS (12)
  - Sepsis [Recovered/Resolved]
  - Pneumonia [Recovering/Resolving]
  - Joint abscess [Recovered/Resolved]
  - Subcutaneous abscess [Recovered/Resolved]
  - Cardiac failure acute [Recovered/Resolved]
  - Disseminated intravascular coagulation [Recovered/Resolved]
  - Renal failure acute [Recovered/Resolved]
  - Rash [Recovered/Resolved]
  - Haemoglobin decreased [Recovered/Resolved]
  - Red blood cell count decreased [Recovered/Resolved]
  - Gastric ulcer haemorrhage [Recovered/Resolved]
  - Retinopathy [Recovered/Resolved]
